FAERS Safety Report 4996879-5 (Version None)
Quarter: 2006Q2

REPORT INFORMATION
  Report Type: 
  Country: None (occurrence: None)
  Receive Date: 20060509
  Receipt Date: 20051117
  Transmission Date: 20061013
  Serious: Yes (Hospitalization, Disabling, Other)
  Sender: FDA-Public Use
  Company Number: US-GLAXOSMITHKLINE-A0582734A

PATIENT
  Age: 49 Year
  Sex: Male

DRUGS (8)
  1. BUPROPION HYDROCHLORIDE [Suspect]
     Indication: DEPRESSION
     Dosage: 100MG THREE TIMES PER DAY
     Route: 048
     Dates: start: 19970101, end: 20040101
  2. WELLBUTRIN XL [Suspect]
     Indication: DEPRESSION
     Dosage: 300MG PER DAY
     Route: 048
     Dates: start: 20040101
  3. LASIX [Concomitant]
     Dosage: 200MG PER DAY
     Route: 048
     Dates: start: 20030101
  4. VASOTEC [Concomitant]
     Dosage: 10MG PER DAY
     Route: 048
     Dates: start: 20030101
  5. COREG [Concomitant]
     Dosage: 6.25MG TWICE PER DAY
     Route: 048
     Dates: start: 20030101
  6. LANOXIN [Concomitant]
     Dosage: .25MG UNKNOWN
     Route: 048
     Dates: start: 20030101
  7. ASPIRIN [Concomitant]
     Dosage: 81MG UNKNOWN
     Route: 048
     Dates: start: 20030101
  8. LIPITOR [Concomitant]
     Dosage: 10MG UNKNOWN
     Route: 048
     Dates: start: 20030101

REACTIONS (3)
  - ATRIAL FIBRILLATION [None]
  - CONGESTIVE CARDIOMYOPATHY [None]
  - HYPERTENSION [None]
